FAERS Safety Report 14659441 (Version 2)
Quarter: 2024Q4

REPORT INFORMATION
  Report Type: Spontaneous
  Country: US (occurrence: US)
  Receive Date: 20180320
  Receipt Date: 20241101
  Transmission Date: 20250114
  Serious: Yes (Hospitalization, Other)
  Sender: AUROBINDO
  Company Number: US-MYLANLABS-2018M1016545

PATIENT
  Age: 29 Year
  Sex: Male

DRUGS (4)
  1. BUDESONIDE [Suspect]
     Active Substance: BUDESONIDE
     Indication: Autoimmune hepatitis
     Dosage: DUAL MEDICATION REGIMEN WITH MERCAPTOPURINE
     Route: 065
  2. MERCAPTOPURINE [Interacting]
     Active Substance: MERCAPTOPURINE
     Indication: Autoimmune hepatitis
     Dosage: DUAL MEDICATION REGIMEN WITH BUDESONIDE
     Route: 065
  3. MESALAMINE [Interacting]
     Active Substance: MESALAMINE
     Indication: Colitis ulcerative
     Dosage: UNK
     Route: 065
  4. SIROLIMUS [Suspect]
     Active Substance: SIROLIMUS
     Indication: Autoimmune hepatitis
     Dosage: UNK
     Route: 065

REACTIONS (7)
  - Myelosuppression [Recovering/Resolving]
  - Cellulitis [Recovering/Resolving]
  - Febrile neutropenia [Recovering/Resolving]
  - Haemorrhagic diathesis [Unknown]
  - Epistaxis [Unknown]
  - Pancytopenia [Recovering/Resolving]
  - Drug interaction [Recovering/Resolving]
